FAERS Safety Report 10146361 (Version 2)
Quarter: 2014Q2

REPORT INFORMATION
  Report Type: Spontaneous
  Country: MX (occurrence: MX)
  Receive Date: 20140501
  Receipt Date: 20140505
  Transmission Date: 20141212
  Serious: Yes (Death)
  Sender: FDA-Public Use
  Company Number: MX-B.I. PHARMACEUTICALS,INC./RIDGEFIELD-2014-BI-19353MX

PATIENT
  Age: 81 Year
  Sex: Female
  Weight: 45 kg

DRUGS (1)
  1. GIOTRIF [Suspect]
     Indication: LUNG ADENOCARCINOMA
     Route: 065
     Dates: start: 201401, end: 201404

REACTIONS (1)
  - Pneumonia [Fatal]
